FAERS Safety Report 25221592 (Version 2)
Quarter: 2025Q2

REPORT INFORMATION
  Report Type: Spontaneous
  Country: US (occurrence: US)
  Receive Date: 20250421
  Receipt Date: 20250510
  Transmission Date: 20250716
  Serious: No
  Sender: SANOFI AVENTIS
  Company Number: US-SA-2025SA113438

PATIENT
  Age: 80 Year
  Sex: Female

DRUGS (18)
  1. DUPIXENT [Suspect]
     Active Substance: DUPILUMAB
     Indication: Dermatitis atopic
     Dosage: 300 MG, QOW
     Route: 058
     Dates: start: 20250211, end: 2025
  2. ATORVASTATIN [Concomitant]
     Active Substance: ATORVASTATIN
  3. VITAMIN B COMPLEX [Concomitant]
     Active Substance: CYANOCOBALAMIN\DEXPANTHENOL\NIACINAMIDE\PYRIDOXINE HYDROCHLORIDE\RIBOFLAVIN 5^-PHOSPHATE SODIUM\THIA
  4. CHLORTHALIDONE [Concomitant]
     Active Substance: CHLORTHALIDONE
  5. CLOBETASOL [Concomitant]
     Active Substance: CLOBETASOL
  6. COLCHICINE [Concomitant]
     Active Substance: COLCHICINE
  7. EUCERIN [Concomitant]
     Active Substance: ENSULIZOLE\EUCERIN\OCTINOXATE\OCTISALATE\TITANIUM DIOXIDE\ZINC OXIDE
  8. FLUTICASONE [Concomitant]
     Active Substance: FLUTICASONE
  9. IRBESARTAN [Concomitant]
     Active Substance: IRBESARTAN
  10. LEVOCETIRIZINE [Concomitant]
     Active Substance: LEVOCETIRIZINE
  11. METFORMIN [Concomitant]
     Active Substance: METFORMIN HYDROCHLORIDE
  12. MONTELUKAST [Concomitant]
     Active Substance: MONTELUKAST
  13. NABUMETONE [Concomitant]
     Active Substance: NABUMETONE
  14. OMEPRAZOLE [Concomitant]
     Active Substance: OMEPRAZOLE
  15. PHENAZOPYRIDINE [Concomitant]
     Active Substance: PHENAZOPYRIDINE
  16. STELARA [Concomitant]
     Active Substance: USTEKINUMAB
  17. STELARA [Concomitant]
     Active Substance: USTEKINUMAB
  18. VITAMIN D [Concomitant]
     Active Substance: VITAMIN D NOS

REACTIONS (1)
  - Abscess limb [Unknown]

NARRATIVE: CASE EVENT DATE: 20250101
